FAERS Safety Report 26137203 (Version 2)
Quarter: 2025Q4

REPORT INFORMATION
  Report Type: Report from Study
  Country: CN (occurrence: CN)
  Receive Date: 20251209
  Receipt Date: 20251209
  Transmission Date: 20260118
  Serious: Yes (Other)
  Sender: VERITY PHARMACEUTICALS INC.
  Company Number: CN-VER-202500052

PATIENT
  Sex: Female

DRUGS (5)
  1. TRIPTORELIN [Suspect]
     Active Substance: TRIPTORELIN
     Indication: In vitro fertilisation
     Dosage: IN 23 DAYS (POWDER FOR PROLONGED-RELEASE SUSPENSION FOR INJECTION)
     Route: 058
  2. TRIPTORELIN [Suspect]
     Active Substance: TRIPTORELIN
     Indication: In vitro fertilisation
     Dosage: POWDER FOR PROLONGED-RELEASE SUSPENSION FOR INJECTION?IN 23 DAY
     Route: 030
  3. CETRORELIX [Concomitant]
     Active Substance: CETRORELIX
     Indication: Product used for unknown indication
     Route: 065
  4. Puregon [Concomitant]
     Indication: Product used for unknown indication
     Route: 065
  5. GONAL-F [Concomitant]
     Active Substance: FOLLITROPIN
     Indication: Product used for unknown indication
     Route: 065

REACTIONS (5)
  - Abortion spontaneous [Unknown]
  - Maternal exposure during pregnancy [Unknown]
  - Off label use [Unknown]
  - Off label use [Unknown]
  - Incorrect route of product administration [Unknown]
